FAERS Safety Report 9549612 (Version 1)
Quarter: 2013Q3

REPORT INFORMATION
  Report Type: Spontaneous
  Country: AT (occurrence: AT)
  Receive Date: 20130924
  Receipt Date: 20130924
  Transmission Date: 20140515
  Serious: Yes (Other)
  Sender: FDA-Public Use
  Company Number: AT-UCBSA-097747

PATIENT
  Age: 66 Year
  Sex: Female

DRUGS (3)
  1. LEVETIRACETAM UCB [Suspect]
     Indication: EPILEPSY
     Dates: start: 20130905
  2. KEPPRA [Concomitant]
     Dates: end: 201309
  3. THALIDOMIDE [Concomitant]
     Dosage: UNKNOWN DOSE

REACTIONS (4)
  - Epilepsy [Recovering/Resolving]
  - Fall [Recovering/Resolving]
  - Face injury [Recovering/Resolving]
  - Haematoma [Recovering/Resolving]
